FAERS Safety Report 4450752-X (Version None)
Quarter: 2004Q3

REPORT INFORMATION
  Report Type: 
  Country: None (occurrence: None)
  Receive Date: 20040914
  Receipt Date: 20040827
  Transmission Date: 20050211
  Serious: Yes (Hospitalization)
  Sender: FDA-Public Use
  Company Number: TAI-0804-153

PATIENT
  Sex: Male
  Weight: 99.7913 kg

DRUGS (2)
  1. PEG-IFNA-2A [Suspect]
     Indication: HEPATITIS C
     Dosage: 180 MCG ONCE WEEKLY SQ
     Route: 058
     Dates: start: 20030515, end: 20040408
  2. THYMOSIN ALPHA 1 [Suspect]
     Indication: HEPATITIS C
     Dosage: 1.6 MG TWICE WEEKLY SQ
     Route: 058
     Dates: start: 20030516

REACTIONS (1)
  - SUICIDE ATTEMPT [None]
